FAERS Safety Report 6725196-8 (Version None)
Quarter: 2010Q2

REPORT INFORMATION
  Report Type: 
  Country: None (occurrence: None)
  Receive Date: 20100514
  Receipt Date: 20100505
  Transmission Date: 20101027
  Serious: Yes (Hospitalization)
  Sender: FDA-Public Use
  Company Number: US-B.I. PHARMACEUTICALS,INC./RIDGEFIELD-2010-BP-05162BP

PATIENT
  Sex: Female

DRUGS (4)
  1. DULCOLAX [Suspect]
     Indication: CONSTIPATION
     Dosage: 10 MG
     Route: 048
  2. CELEXA [Concomitant]
     Indication: SCHIZOAFFECTIVE DISORDER
     Route: 048
  3. ATIVAN [Concomitant]
     Indication: SCHIZOAFFECTIVE DISORDER
     Route: 048
  4. STELAZINE [Concomitant]
     Indication: SCHIZOAFFECTIVE DISORDER
     Route: 048
     Dates: start: 19900101

REACTIONS (5)
  - ABDOMINAL DISTENSION [None]
  - BLOOD CHOLESTEROL INCREASED [None]
  - CEREBROVASCULAR ACCIDENT [None]
  - FLATULENCE [None]
  - MUSCLE SPASMS [None]
